FAERS Safety Report 12450527 (Version 1)
Quarter: 2016Q2

REPORT INFORMATION
  Report Type: Spontaneous
  Country: US (occurrence: US)
  Receive Date: 20160609
  Receipt Date: 20160609
  Transmission Date: 20160815
  Serious: No
  Sender: FDA-Public Use
  Company Number: US-APOTEX-2015AP014068

PATIENT
  Sex: Male

DRUGS (1)
  1. AZELASTINE HYDROCHLORIDE NASAL SOLUTION (NASAL SPRAY) [Suspect]
     Active Substance: AZELASTINE HYDROCHLORIDE
     Indication: NASAL CONGESTION
     Dosage: 2 SPRAYS/NOSTRIL, ONCE DAILY.
     Route: 045

REACTIONS (2)
  - Nasal congestion [Unknown]
  - Drug ineffective [Unknown]
